FAERS Safety Report 25188956 (Version 1)
Quarter: 2025Q2

REPORT INFORMATION
  Report Type: Report from Study
  Country: US (occurrence: US)
  Receive Date: 20250411
  Receipt Date: 20250411
  Transmission Date: 20250716
  Serious: Yes (Death)
  Sender: ALEXION PHARMACEUTICALS
  Company Number: US-AstraZeneca-CH-00844907A

PATIENT

DRUGS (5)
  1. IMFINZI [Suspect]
     Active Substance: DURVALUMAB
     Indication: Cholangiocarcinoma
     Dosage: 1500 MILLIGRAM, Q3W
  2. UNSPECIFIED INGREDIENT [Suspect]
     Active Substance: UNSPECIFIED INGREDIENT
     Route: 065
  3. CISPLATIN [Concomitant]
     Active Substance: CISPLATIN
  4. GEMCITABINE [Concomitant]
     Active Substance: GEMCITABINE
  5. PLATINOL [Concomitant]
     Active Substance: CISPLATIN

REACTIONS (1)
  - Death [Fatal]
